FAERS Safety Report 4799888-4 (Version None)
Quarter: 2005Q4

REPORT INFORMATION
  Report Type: 
  Country: None (occurrence: None)
  Receive Date: 20051013
  Receipt Date: 20051005
  Transmission Date: 20060501
  Serious: Yes (Other)
  Sender: FDA-Public Use
  Company Number: HQWYE627026SEP05

PATIENT
  Age: 55 Year
  Sex: Female

DRUGS (2)
  1. ETODOLAC [Suspect]
     Indication: JOINT SPRAIN
     Dosage: 400 MG 1X PER 1 DAY ORAL
     Route: 048
     Dates: start: 20050901, end: 20050902
  2. TEPRENONE (TEPRENONE) [Concomitant]

REACTIONS (3)
  - DRUG ERUPTION [None]
  - FACE OEDEMA [None]
  - GENERALISED ERYTHEMA [None]
